FAERS Safety Report 10622254 (Version 4)
Quarter: 2015Q1

REPORT INFORMATION
  Report Type: Spontaneous
  Country: JP (occurrence: JP)
  Receive Date: 20141203
  Receipt Date: 20150310
  Transmission Date: 20150720
  Serious: Yes (Life-Threatening, Hospitalization, Other)
  Sender: FDA-Public Use
  Company Number: JP-MALLINCKRODT-T201403453

PATIENT
  Age: 60 Year
  Sex: Female
  Weight: 46 kg

DRUGS (21)
  1. DOGMATYL [Concomitant]
     Active Substance: SULPIRIDE
     Dosage: 150 MG
     Route: 048
  2. CONSTAN [Concomitant]
     Active Substance: ALPRAZOLAM
     Dosage: 0.4 MG
     Route: 048
  3. REFLEX [Concomitant]
     Active Substance: MIRTAZAPINE
     Dosage: 15 MG
     Route: 048
     Dates: start: 20140206
  4. LECICARBON CO2 LAXANS [Concomitant]
     Dosage: 1 DF
     Route: 054
  5. METHADONE [Suspect]
     Active Substance: METHADONE HYDROCHLORIDE
     Dosage: 10 MG, (20 MG DAILY DOSE)
     Route: 048
     Dates: start: 20140123, end: 20140131
  6. MAGMITT [Concomitant]
     Active Substance: MAGNESIUM OXIDE
     Dosage: 1980 MG
     Route: 048
  7. FENTANYL. [Concomitant]
     Active Substance: FENTANYL
     Dosage: 2.4 MG
     Route: 051
     Dates: start: 20140109, end: 20140226
  8. METHADONE [Suspect]
     Active Substance: METHADONE HYDROCHLORIDE
     Dosage: 5 MG, (15 MG DAILY DOSE)
     Route: 048
     Dates: start: 20140115, end: 20140122
  9. MIYA-BM [Concomitant]
     Active Substance: CLOSTRIDIUM BUTYRICUM SPORES STRAIN M-55
     Dosage: 3 G
     Route: 048
  10. TELEMINSOFT [Concomitant]
     Dosage: 10 MG
     Route: 054
  11. JZOLOFT [Concomitant]
     Active Substance: SERTRALINE HYDROCHLORIDE
     Dosage: 75 MG
     Route: 048
  12. AMITIZA [Concomitant]
     Active Substance: LUBIPROSTONE
     Dosage: 48 ?G
     Route: 048
  13. GABALON [Concomitant]
     Active Substance: BACLOFEN
     Dosage: 5 MG
     Route: 048
     Dates: start: 20140117
  14. GASCON [Concomitant]
     Active Substance: DIMETHICONE
     Dosage: 120 MG
     Route: 048
     Dates: start: 20140213
  15. METHADONE [Suspect]
     Active Substance: METHADONE HYDROCHLORIDE
     Indication: CANCER PAIN
     Dosage: 10 MG, (30 MG DAILY DOSE)
     Route: 048
     Dates: start: 20140201, end: 20140212
  16. METHADONE [Suspect]
     Active Substance: METHADONE HYDROCHLORIDE
     Dosage: 10 MG, (20 MG DAILY DOSE)
     Route: 048
     Dates: start: 20140213, end: 20140214
  17. FENTANYL. [Concomitant]
     Active Substance: FENTANYL
     Dosage: 0.1 MG, PRN
     Route: 051
     Dates: start: 20140114, end: 20140120
  18. SENNA [Concomitant]
     Active Substance: SENNA LEAF\SENNOSIDES\SENNOSIDES A AND B
     Dosage: 1 G
     Route: 048
  19. METHADONE [Suspect]
     Active Substance: METHADONE HYDROCHLORIDE
     Dosage: 5 MG, (15 MG DAILY DOSE)
     Route: 048
     Dates: start: 20140215, end: 20140217
  20. PRIMPERAN [Concomitant]
     Active Substance: METOCLOPRAMIDE HYDROCHLORIDE
     Dosage: 15 MG
     Route: 048
  21. MYSLEE [Concomitant]
     Active Substance: ZOLPIDEM TARTRATE
     Dosage: 5 MG
     Route: 048

REACTIONS (2)
  - Depressed level of consciousness [Recovered/Resolved]
  - Respiratory depression [Recovered/Resolved]

NARRATIVE: CASE EVENT DATE: 20140208
